FAERS Safety Report 11238548 (Version 1)
Quarter: 2015Q3

REPORT INFORMATION
  Report Type: Spontaneous
  Country: US (occurrence: US)
  Receive Date: 20150705
  Receipt Date: 20150705
  Transmission Date: 20151125
  Serious: No
  Sender: FDA-Public Use
  Company Number: US-009507513-1506USA011592

PATIENT
  Sex: Female
  Weight: 41.72 kg

DRUGS (1)
  1. NEXPLANON [Suspect]
     Active Substance: ETONOGESTREL
     Indication: CONTRACEPTION
     Dosage: ONE ROD 3 YEARS
     Route: 059

REACTIONS (2)
  - Metrorrhagia [Unknown]
  - Menstruation irregular [Unknown]
